FAERS Safety Report 10254595 (Version 1)
Quarter: 2014Q2

REPORT INFORMATION
  Report Type: Report from Study
  Country: US (occurrence: US)
  Receive Date: 20140624
  Receipt Date: 20140624
  Transmission Date: 20141212
  Serious: Yes (Other)
  Sender: FDA-Public Use
  Company Number: PHEH2014US012338

PATIENT
  Sex: Female
  Weight: 90.7 kg

DRUGS (2)
  1. GILENYA [Suspect]
     Indication: MULTIPLE SCLEROSIS
     Dosage: 0.5 MG, QD
     Route: 048
  2. GABAPENTIN [Concomitant]

REACTIONS (21)
  - Central nervous system lesion [Unknown]
  - Blood pressure increased [Unknown]
  - Fatigue [Unknown]
  - Dry mouth [Unknown]
  - Muscular weakness [Not Recovered/Not Resolved]
  - Burning sensation [Unknown]
  - Facial pain [Unknown]
  - Pain in jaw [Unknown]
  - Vertigo [Unknown]
  - Micturition urgency [Unknown]
  - Affect lability [Unknown]
  - Memory impairment [Unknown]
  - Speech disorder [Unknown]
  - Sensory disturbance [Unknown]
  - Ataxia [Unknown]
  - Romberg test positive [Unknown]
  - Hypoaesthesia [Not Recovered/Not Resolved]
  - Vision blurred [Unknown]
  - Depression [Unknown]
  - Headache [Not Recovered/Not Resolved]
  - Dizziness [Unknown]
